FAERS Safety Report 11662834 (Version 3)
Quarter: 2016Q1

REPORT INFORMATION
  Report Type: Spontaneous
  Country: US (occurrence: US)
  Receive Date: 20151027
  Receipt Date: 20160119
  Transmission Date: 20160525
  Serious: Yes (Hospitalization)
  Sender: FDA-Public Use
  Company Number: US-PFIZER INC-2015302335

PATIENT
  Age: 81 Year
  Sex: Male

DRUGS (4)
  1. NORCO [Concomitant]
     Active Substance: ACETAMINOPHEN\HYDROCODONE BITARTRATE
     Indication: PAIN
     Dosage: UNK`(1-2 PO Q4-6 HRS.)
     Route: 048
     Dates: start: 20150708
  2. MEGESTROL ACETATE. [Concomitant]
     Active Substance: MEGESTROL ACETATE
     Indication: WEIGHT DECREASED
     Dosage: 400 MG, 2X/DAY
     Route: 048
     Dates: start: 20150817
  3. SUTENT [Suspect]
     Active Substance: SUNITINIB MALATE
     Indication: RENAL CELL CARCINOMA
     Dosage: 1 DF, CYCLIC (DAILY FOR 28 DAYS)
     Route: 048
     Dates: start: 20150814, end: 20150906
  4. ZOFRAN [Concomitant]
     Active Substance: ONDANSETRON HYDROCHLORIDE
     Indication: NAUSEA
     Dosage: 1 DF, 3X/DAY (1 PO Q8H PRN)
     Route: 048
     Dates: start: 20150824

REACTIONS (2)
  - Confusional state [Recovering/Resolving]
  - Haematuria [Recovered/Resolved]
